FAERS Safety Report 24306708 (Version 2)
Quarter: 2024Q3

REPORT INFORMATION
  Report Type: Spontaneous
  Country: US (occurrence: US)
  Receive Date: 20240911
  Receipt Date: 20240917
  Transmission Date: 20241017
  Serious: No
  Sender: AMGEN
  Company Number: US-AMGEN-USASP2024180077

PATIENT
  Age: 76 Year
  Sex: Female

DRUGS (2)
  1. REPATHA [Suspect]
     Active Substance: EVOLOCUMAB
     Indication: Product used for unknown indication
     Dosage: 140 MILLIGRAM, Q2WK
     Route: 058
     Dates: start: 202404
  2. REPATHA [Suspect]
     Active Substance: EVOLOCUMAB
     Dosage: UNK, UNK
     Route: 058

REACTIONS (4)
  - Wrong technique in product usage process [Unknown]
  - Device difficult to use [Unknown]
  - Incorrect disposal of product [Unknown]
  - Drug dose omission by device [Unknown]

NARRATIVE: CASE EVENT DATE: 20240906
